FAERS Safety Report 5420167-6 (Version None)
Quarter: 2007Q3

REPORT INFORMATION
  Report Type: 
  Country: None (occurrence: None)
  Receive Date: 20070820
  Receipt Date: 20070807
  Transmission Date: 20080115
  Serious: No
  Sender: FDA-Public Use
  Company Number: US-BOEHRINGER INGELHEIM PHARMACEUTICALS, INC.-2007-BP-18737BP

PATIENT
  Age: 80 Year
  Sex: Male

DRUGS (3)
  1. SPIRIVA [Suspect]
     Indication: CHRONIC OBSTRUCTIVE PULMONARY DISEASE
     Route: 055
     Dates: start: 20060801, end: 20070720
  2. SYNTHROID [Concomitant]
     Indication: THYROID DISORDER
  3. TRIAMTERENE [Concomitant]
     Indication: BLOOD PRESSURE INCREASED

REACTIONS (1)
  - PROSTATIC SPECIFIC ANTIGEN INCREASED [None]
